FAERS Safety Report 24759474 (Version 1)
Quarter: 2024Q4

REPORT INFORMATION
  Report Type: Spontaneous
  Country: BR (occurrence: BR)
  Receive Date: 20241220
  Receipt Date: 20241220
  Transmission Date: 20250115
  Serious: Yes (Life-Threatening, Other)
  Sender: PFIZER
  Company Number: BR-PFIZER INC-PV202400164296

PATIENT
  Age: 19 Year
  Sex: Female

DRUGS (4)
  1. METHYLPREDNISOLONE SODIUM SUCCINATE [Suspect]
     Active Substance: METHYLPREDNISOLONE SODIUM SUCCINATE
     Indication: Visual impairment
     Dosage: 1 G
     Route: 042
  2. METHYLPREDNISOLONE SODIUM SUCCINATE [Suspect]
     Active Substance: METHYLPREDNISOLONE SODIUM SUCCINATE
     Indication: Optic disc hyperaemia
     Dosage: NEW CYCLE OF PULSE THERAPY
  3. METHYLPREDNISOLONE SODIUM SUCCINATE [Suspect]
     Active Substance: METHYLPREDNISOLONE SODIUM SUCCINATE
     Indication: Vogt-Koyanagi-Harada disease
  4. CYCLOPHOSPHAMIDE [Concomitant]
     Active Substance: CYCLOPHOSPHAMIDE
     Dosage: PULSE THERAPY
     Route: 042

REACTIONS (6)
  - Osteonecrosis [Unknown]
  - Acne [Unknown]
  - Hirsutism [Unknown]
  - Weight increased [Unknown]
  - Drug ineffective for unapproved indication [Unknown]
  - Off label use [Unknown]
